FAERS Safety Report 12341636 (Version 1)
Quarter: 2016Q2

REPORT INFORMATION
  Report Type: Spontaneous
  Country: GB (occurrence: GB)
  Receive Date: 20160506
  Receipt Date: 20160506
  Transmission Date: 20160815
  Serious: Yes (Hospitalization)
  Sender: FDA-Public Use
  Company Number: GB-BIOGEN-2016BI00233359

PATIENT
  Sex: Male

DRUGS (1)
  1. PLEGRIDY [Suspect]
     Active Substance: PEGINTERFERON BETA-1A
     Indication: PRODUCT USED FOR UNKNOWN INDICATION
     Route: 065
     Dates: start: 20160420

REACTIONS (6)
  - Pain in extremity [Unknown]
  - Dizziness [Unknown]
  - Stomatitis [Unknown]
  - Vomiting [Unknown]
  - Oral mucosal blistering [Unknown]
  - Nasal herpes [Unknown]
